FAERS Safety Report 9521595 (Version 1)
Quarter: 2013Q1

REPORT INFORMATION
  Report Type: Spontaneous
  Country: US (occurrence: None)
  Receive Date: 20130305
  Receipt Date: 20130305
  Transmission Date: 20140127
  Serious: Yes (Hospitalization)
  Sender: FDA-Public Use
  Company Number: 163-21880-12072187

PATIENT
  Age: 75 Year
  Sex: Male
  Weight: 70.31 kg

DRUGS (12)
  1. REVLIMID (LENALIDOMIDE) (25 MILLIGRAM, CAPSULES) [Suspect]
     Indication: PLASMA CELL MYELOMA
     Dosage: 25 MG, 21 IN 21 D, PO
     Route: 048
     Dates: start: 20100219, end: 20120717
  2. HYDROCODONE/HOMATOP (HYDROCODONE COMPOUND) (UNKNOWN) [Concomitant]
  3. IRON [Concomitant]
  4. LISINOPRIL (LISINOPRIL) (UNKNOWN) [Concomitant]
  5. MULTIVITAMINS (MULTIVITAMINS) (UNKNOWN) [Concomitant]
  6. STOOL SOFTENER (DOCUSATE SODIUM) (UNKNOWN) [Concomitant]
  7. VITAMIN D (ERGOCALCIFREROL) (UNKNOWN) [Concomitant]
  8. MEGACE (MEGESTROL ACETATE) (UNKNOWN) [Concomitant]
  9. KCL (POTASSIUM CHLORIDE) (UNKNOWN) [Concomitant]
  10. SYNTHROID (LEVOTHYROXINE SODIUM) (UNKNOWN) [Concomitant]
  11. CYMBALTA (DULOXETINE HYDROCHLORIDE) (UNKNOWN) [Concomitant]
  12. LYRICA (PREGABALIN) (UNKNOWN) [Concomitant]

REACTIONS (1)
  - Abscess [None]
